FAERS Safety Report 8340435-8 (Version None)
Quarter: 2012Q2

REPORT INFORMATION
  Report Type: 
  Country: None (occurrence: None)
  Receive Date: 20120507
  Receipt Date: 20120507
  Transmission Date: 20120825
  Serious: Yes (Life-Threatening, Hospitalization, Disabling)
  Sender: FDA-Public Use
  Company Number: None

PATIENT
  Age: 31 Year
  Sex: Female
  Weight: 53.523 kg

DRUGS (2)
  1. ZOLOFT [Concomitant]
     Route: 048
  2. MIRENA [Suspect]

REACTIONS (8)
  - DEPRESSION [None]
  - ACNE [None]
  - FEELING ABNORMAL [None]
  - ANXIETY [None]
  - LOSS OF LIBIDO [None]
  - AFFECTIVE DISORDER [None]
  - SUICIDAL IDEATION [None]
  - GENERAL PHYSICAL HEALTH DETERIORATION [None]
